FAERS Safety Report 7903015 (Version 2)
Quarter: 2016Q4

REPORT INFORMATION
  Report Type: Spontaneous
  Country: ES (occurrence: ES)
  Receive Date: 20110418
  Receipt Date: 20161202
  Transmission Date: 20170207
  Serious: Yes (Life-Threatening, Hospitalization)
  Sender: FDA-Public Use
  Company Number: ES-JNJFOC-20110405147

PATIENT
  Age: 17 Year
  Sex: Female

DRUGS (1)
  1. MEBENDAZOL [Suspect]
     Active Substance: MEBENDAZOLE
     Indication: FILARIASIS
     Route: 048

REACTIONS (4)
  - Encephalitis [Recovered/Resolved with Sequelae]
  - Product use issue [Recovered/Resolved]
  - Maternal exposure during pregnancy [None]
  - Hypersensitivity [Unknown]
